FAERS Safety Report 8991850 (Version 1)
Quarter: 2012Q4

REPORT INFORMATION
  Report Type: 
  Country: IT (occurrence: IT)
  Receive Date: 20121231
  Receipt Date: 20121231
  Transmission Date: 20130627
  Serious: Yes (Life-Threatening)
  Sender: FDA-Public Use
  Company Number: PHHY2012IT120989

PATIENT
  Age: 79 Year
  Sex: Female

DRUGS (1)
  1. TICLOPIDINE [Suspect]
     Indication: PLATELET AGGREGATION INHIBITION
     Dosage: 1 DF, UNK
     Route: 048
     Dates: start: 20070101, end: 20120723

REACTIONS (3)
  - Subarachnoid haemorrhage [Recovering/Resolving]
  - Subdural haematoma [Recovering/Resolving]
  - Skull fracture [Recovering/Resolving]
